FAERS Safety Report 14856820 (Version 1)
Quarter: 2018Q2

REPORT INFORMATION
  Report Type: Spontaneous
  Country: US (occurrence: US)
  Receive Date: 20180507
  Receipt Date: 20180507
  Transmission Date: 20180711
  Serious: No
  Sender: FDA-Public Use
  Company Number: US-ROCHE-2061893

PATIENT
  Sex: Female

DRUGS (10)
  1. ESBRIET [Suspect]
     Active Substance: PIRFENIDONE
     Route: 048
     Dates: start: 20171212
  2. ATENOLOL. [Concomitant]
     Active Substance: ATENOLOL
     Route: 065
  3. LIPITOR [Concomitant]
     Active Substance: ATORVASTATIN CALCIUM
     Route: 065
  4. MELOXICAM. [Concomitant]
     Active Substance: MELOXICAM
     Route: 065
  5. PROZAC [Concomitant]
     Active Substance: FLUOXETINE HYDROCHLORIDE
     Route: 065
  6. ESBRIET [Suspect]
     Active Substance: PIRFENIDONE
     Indication: PULMONARY FIBROSIS
     Dosage: 1 TAB 3 TIMES DAILY FOR 1 WEEK
     Route: 048
     Dates: start: 20171212
  7. ESBRIET [Suspect]
     Active Substance: PIRFENIDONE
     Dosage: 2 TAB 3 TIMES DAILY FOR 1 WEEK
     Route: 048
     Dates: start: 20171212
  8. OMEPRAZOLE. [Concomitant]
     Active Substance: OMEPRAZOLE
     Route: 065
  9. LOSARTAN POTASSIUM. [Concomitant]
     Active Substance: LOSARTAN POTASSIUM
     Route: 065
  10. AMBIEN [Concomitant]
     Active Substance: ZOLPIDEM TARTRATE
     Route: 065

REACTIONS (1)
  - Fatigue [Not Recovered/Not Resolved]
